FAERS Safety Report 12692631 (Version 1)
Quarter: 2016Q3

REPORT INFORMATION
  Report Type: Spontaneous
  Country: US (occurrence: US)
  Receive Date: 20160829
  Receipt Date: 20160829
  Transmission Date: 20161109
  Serious: No
  Sender: FDA-Public Use
  Company Number: US-AJANTA PHARMA USA INC.-1056816

PATIENT
  Age: 58 Year
  Sex: Male
  Weight: 104.55 kg

DRUGS (5)
  1. GUANFACINE EXTENDED-RELEASE [Concomitant]
     Active Substance: GUANFACINE
  2. KLONOPIN [Concomitant]
     Active Substance: CLONAZEPAM
  3. MELATONIN [Concomitant]
     Active Substance: MELATONIN
  4. ATORVASTATIN CALCIUM. [Concomitant]
     Active Substance: ATORVASTATIN CALCIUM
  5. RISPERIDONE. [Suspect]
     Active Substance: RISPERIDONE
     Indication: AUTISM SPECTRUM DISORDER
     Route: 048
     Dates: start: 20160307, end: 20160308

REACTIONS (6)
  - Listless [Recovered/Resolved]
  - Overdose [Recovering/Resolving]
  - Somnolence [Recovering/Resolving]
  - Mania [Recovering/Resolving]
  - Product substitution issue [Unknown]
  - Disturbance in attention [Recovering/Resolving]

NARRATIVE: CASE EVENT DATE: 20160307
